FAERS Safety Report 7031513-4 (Version None)
Quarter: 2010Q4

REPORT INFORMATION
  Report Type: 
  Country: None (occurrence: None)
  Receive Date: 20101006
  Receipt Date: 20101006
  Transmission Date: 20110411
  Serious: Yes (Life-Threatening, Hospitalization, Other)
  Sender: FDA-Public Use
  Company Number: None

PATIENT
  Age: 76 Year
  Sex: Female
  Weight: 83.9154 kg

DRUGS (1)
  1. EVISTA [Suspect]
     Indication: BONE DISORDER
     Dosage: 60MG ONCE A DAY PO
     Route: 048
     Dates: start: 20100111, end: 20100710

REACTIONS (1)
  - PULMONARY THROMBOSIS [None]
